FAERS Safety Report 19007156 (Version 4)
Quarter: 2021Q2

REPORT INFORMATION
  Report Type: Spontaneous
  Country: JP (occurrence: JP)
  Receive Date: 20210315
  Receipt Date: 20210420
  Transmission Date: 20210717
  Serious: Yes (Other)
  Sender: FDA-Public Use
  Company Number: JP-AMGEN-JPNSP2021039301

PATIENT
  Age: 8 Decade
  Sex: Male
  Weight: 66 kg

DRUGS (3)
  1. BEVACIZUMAB. [Suspect]
     Active Substance: BEVACIZUMAB
     Indication: COLORECTAL CANCER
     Dosage: 400 MILLIGRAM, QD
     Route: 041
     Dates: start: 20210122, end: 20210122
  2. XELODA [Concomitant]
     Active Substance: CAPECITABINE
     Dosage: 1045 MG/M2, BID 2 DOSES, 1 WITHDRAWAL
     Route: 048
     Dates: start: 20170718
  3. OXALIPLATIN. [Concomitant]
     Active Substance: OXALIPLATIN
     Dosage: 58 MILLIGRAM/SQ. METER, Q3WK
     Route: 041
     Dates: start: 20180511

REACTIONS (3)
  - Anaphylactic reaction [Recovered/Resolved]
  - Vasculitis [Recovered/Resolved]
  - Blood pressure decreased [Recovered/Resolved]

NARRATIVE: CASE EVENT DATE: 20210122
